FAERS Safety Report 7815553-0 (Version None)
Quarter: 2011Q4

REPORT INFORMATION
  Report Type: 
  Country: None (occurrence: None)
  Receive Date: 20111014
  Receipt Date: 20111013
  Transmission Date: 20120403
  Serious: Yes (Life-Threatening, Hospitalization)
  Sender: FDA-Public Use
  Company Number: JP-B.I. PHARMACEUTICALS,INC./RIDGEFIELD-2011-BP-20842NB

PATIENT
  Sex: Male
  Weight: 61.6 kg

DRUGS (10)
  1. LANSOPRAZOLE [Concomitant]
     Dosage: 15 MG
     Route: 048
     Dates: start: 20110506
  2. DIGOXIN [Concomitant]
     Indication: ATRIAL FIBRILLATION
     Dosage: 0.125 MG
     Route: 048
     Dates: start: 20110506
  3. FUROSEMIDE [Concomitant]
     Indication: HYPERTENSION
     Dosage: 10 MG
     Route: 048
     Dates: start: 20110506
  4. AMOBAN [Concomitant]
     Indication: INSOMNIA
     Dosage: 7.5 MG
     Route: 048
     Dates: start: 20110512
  5. PRADAXA [Suspect]
     Indication: ATRIAL FIBRILLATION
     Dosage: 220 MG
     Route: 048
     Dates: start: 20110630, end: 20110725
  6. GEMZAR [Suspect]
     Indication: PANCREATIC CARCINOMA
     Dates: start: 20110520, end: 20110624
  7. GASMOTIN [Concomitant]
     Indication: GASTRITIS
     Dosage: 15 MG
     Route: 048
     Dates: start: 20110512
  8. TS-1 [Suspect]
     Indication: PANCREATIC CARCINOMA
     Route: 065
     Dates: start: 20110720, end: 20110802
  9. CANDESARTAN CILEXETIL [Concomitant]
     Indication: HYPERTENSION
     Dosage: 4 MG
     Route: 048
  10. CARVEDILOL [Concomitant]
     Indication: HYPERTENSION
     Dosage: 2.5 MG
     Route: 048
     Dates: start: 20110506

REACTIONS (1)
  - THROMBOCYTOPENIA [None]
